FAERS Safety Report 4410676-0 (Version None)
Quarter: 2004Q3

REPORT INFORMATION
  Report Type: 
  Country: None (occurrence: None)
  Receive Date: 20040726
  Receipt Date: 20040713
  Transmission Date: 20050211
  Serious: Yes (Other)
  Sender: FDA-Public Use
  Company Number: 2004047307

PATIENT
  Sex: Female
  Weight: 24.9478 kg

DRUGS (3)
  1. ZARONTIN SYRUP [Suspect]
     Indication: CONVULSION
     Dosage: 50 MG (25 MG, 2 IN 1 D), ORAL
     Route: 048
     Dates: start: 19970101
  2. VALPROATE SODIUM [Concomitant]
  3. LEVOCARNITINE (LEVOCARNITINE) [Concomitant]

REACTIONS (8)
  - CONVULSION [None]
  - CRYING [None]
  - DRUG LEVEL BELOW THERAPEUTIC [None]
  - DRUG LEVEL INCREASED [None]
  - DRUG WITHDRAWAL SYNDROME [None]
  - EAR INFECTION [None]
  - INSOMNIA [None]
  - PHARMACEUTICAL PRODUCT COMPLAINT [None]
